FAERS Safety Report 5020611-2 (Version None)
Quarter: 2006Q2

REPORT INFORMATION
  Report Type: 
  Country: None (occurrence: None)
  Receive Date: 20060602
  Receipt Date: 20060523
  Transmission Date: 20061013
  Serious: Yes (Death)
  Sender: FDA-Public Use
  Company Number: 2006BI003508

PATIENT
  Age: 69 Year
  Sex: Female

DRUGS (12)
  1. AVONEX [Suspect]
     Indication: MULTIPLE SCLEROSIS
     Dosage: 30 UG;QW;IM
     Route: 030
     Dates: start: 20050325, end: 20051201
  2. ASPIRIN [Concomitant]
  3. ATROVENT [Concomitant]
  4. WELLBUTRIN [Concomitant]
  5. IBUPROFEN [Concomitant]
  6. KEPPRA [Concomitant]
  7. LORAZEPAM [Concomitant]
  8. LOVASTATIN [Concomitant]
  9. VERAPAMIL [Concomitant]
  10. QVAR 40 [Concomitant]
  11. NIFEDIPINE [Concomitant]
  12. ADVAIR DISKUS 100/50 [Concomitant]

REACTIONS (1)
  - RESPIRATORY FAILURE [None]
